FAERS Safety Report 17261309 (Version 1)
Quarter: 2020Q1

REPORT INFORMATION
  Report Type: Spontaneous
  Country: FR (occurrence: FR)
  Receive Date: 20200113
  Receipt Date: 20200113
  Transmission Date: 20200409
  Serious: Yes (Death, Life-Threatening, Other)
  Sender: FDA-Public Use
  Company Number: FR-AMGEN-FRASP2020002790

PATIENT

DRUGS (1)
  1. BLINATUMOMAB [Suspect]
     Active Substance: BLINATUMOMAB
     Indication: PRODUCT USED FOR UNKNOWN INDICATION
     Dosage: UNK
     Route: 065

REACTIONS (8)
  - Death [Fatal]
  - Human herpesvirus 6 encephalitis [Unknown]
  - Cytokine release syndrome [Fatal]
  - Neutropenia [Unknown]
  - Precursor B-lymphoblastic lymphoma recurrent [Unknown]
  - Thrombocytopenia [Unknown]
  - Nervous system disorder [Unknown]
  - Disease progression [Unknown]
